FAERS Safety Report 5671345-2 (Version None)
Quarter: 2008Q1

REPORT INFORMATION
  Report Type: 
  Country: None (occurrence: None)
  Receive Date: 20080312
  Receipt Date: 20080229
  Transmission Date: 20080703
  Serious: Yes (Hospitalization)
  Sender: FDA-Public Use
  Company Number: WAES 0801DNK00014

PATIENT
  Age: 77 Year
  Sex: Female

DRUGS (10)
  1. CAP VORINOSTAT [Suspect]
     Indication: OVARIAN EPITHELIAL CANCER RECURRENT
     Dosage: 400 M/DAILY, PO; 300MG/DAILY, PO;
     Route: 048
     Dates: start: 20080111, end: 20080225
  2. CAP VORINOSTAT [Suspect]
     Indication: OVARIAN EPITHELIAL CANCER RECURRENT
     Dosage: 400 M/DAILY, PO; 300MG/DAILY, PO;
     Route: 048
     Dates: start: 20080118, end: 20080228
  3. CARBOPLATIN [Suspect]
     Indication: OVARIAN EPITHELIAL CANCER RECURRENT
     Dosage: 425 MG, INTRAVENOUS; 340 MG
     Route: 042
     Dates: start: 20080122, end: 20080122
  4. CARBOPLATIN [Suspect]
     Indication: OVARIAN EPITHELIAL CANCER RECURRENT
     Dosage: 425 MG, INTRAVENOUS; 340 MG
     Route: 042
     Dates: start: 20080211, end: 20080211
  5. PLACLITAXEL [Suspect]
     Indication: OVARIAN EPITHELIAL CANCER RECURRENT
     Dosage: 300 MG, IV; 230 MG, IV
     Route: 042
     Dates: start: 20080122, end: 20080122
  6. PLACLITAXEL [Suspect]
     Indication: OVARIAN EPITHELIAL CANCER RECURRENT
     Dosage: 300 MG, IV; 230 MG, IV
     Route: 042
     Dates: start: 20080211, end: 20080211
  7. MG OXIDE [Concomitant]
  8. METOCLOPRAMIDE HYDROCHLORIDE [Concomitant]
  9. ONDANSETRON HCL [Concomitant]
  10. PREDNISOLONE [Concomitant]

REACTIONS (12)
  - BLOOD THYROID STIMULATING HORMONE INCREASED [None]
  - CONSTIPATION [None]
  - DEHYDRATION [None]
  - DIZZINESS [None]
  - DYSPNOEA [None]
  - FIBRIN D DIMER INCREASED [None]
  - HYPERMAGNESAEMIA [None]
  - NAUSEA [None]
  - ORAL FUNGAL INFECTION [None]
  - SYNCOPE [None]
  - THROMBOCYTOPENIA [None]
  - VOMITING [None]
